FAERS Safety Report 11797048 (Version 2)
Quarter: 2016Q1

REPORT INFORMATION
  Report Type: Spontaneous
  Country: US (occurrence: US)
  Receive Date: 20151203
  Receipt Date: 20160104
  Transmission Date: 20160525
  Serious: Yes (Other)
  Sender: FDA-Public Use
  Company Number: US-PFIZER INC-2015404504

PATIENT
  Age: 45 Year
  Sex: Female
  Weight: 102 kg

DRUGS (2)
  1. ALBUTEROL. [Concomitant]
     Active Substance: ALBUTEROL
     Indication: ASTHMA
     Dosage: INHALER, USES IT AS NEEDED, MOSTLY EVERY OTHER DAY
  2. RELPAX [Suspect]
     Active Substance: ELETRIPTAN HYDROBROMIDE
     Indication: MIGRAINE
     Dosage: 40MG AT THE ONSET OF A MIGRAINE, UP TO TWICE A DAY AS NEEDED
     Route: 048

REACTIONS (2)
  - Mental impairment [Unknown]
  - Headache [Unknown]
